FAERS Safety Report 7934172-9 (Version None)
Quarter: 2011Q4

REPORT INFORMATION
  Report Type: 
  Country: None (occurrence: None)
  Receive Date: 20111118
  Receipt Date: 20111107
  Transmission Date: 20120403
  Serious: Yes (Hospitalization, Other)
  Sender: FDA-Public Use
  Company Number: MPS1-1000582

PATIENT
  Age: 22 Month
  Sex: Female
  Weight: 12.4739 kg

DRUGS (11)
  1. CYCLOSPORINE [Concomitant]
  2. AMLODIPINE [Concomitant]
  3. ALBUTEROL SULFATE [Concomitant]
  4. GRANISETRON [Concomitant]
  5. FLUCONAZOLE [Concomitant]
  6. FLUTICASONE PROPIONATE [Concomitant]
  7. ACYCLOVIR [Concomitant]
  8. ACETYLCYSTEINE [Concomitant]
  9. LANSOPRAZOLE [Concomitant]
  10. ALDURAZYME [Suspect]
     Indication: MUCOPOLYSACCHARIDOSIS I
     Dosage: 5.6 MG, QW, INTRAVENOUS
     Route: 042
     Dates: start: 20110118, end: 20111004
  11. GRAVOL (DIMENHYDRINATE) [Concomitant]

REACTIONS (7)
  - TRANSPLANT FAILURE [None]
  - PYREXIA [None]
  - STEM CELL TRANSPLANT [None]
  - STREPTOCOCCAL BACTERAEMIA [None]
  - RESPIRATORY SYNCYTIAL VIRUS TEST POSITIVE [None]
  - RASH [None]
  - ROTAVIRUS TEST POSITIVE [None]
